FAERS Safety Report 8401428-5 (Version None)
Quarter: 2012Q2

REPORT INFORMATION
  Report Type: 
  Country: None (occurrence: None)
  Receive Date: 20120601
  Receipt Date: 20120523
  Transmission Date: 20120825
  Serious: Yes (Hospitalization, Other)
  Sender: FDA-Public Use
  Company Number: CA-JNJFOC-20120413250

PATIENT
  Sex: Male
  Weight: 74 kg

DRUGS (9)
  1. ATIVAN [Concomitant]
     Route: 065
  2. VANCOMYCIN [Concomitant]
     Indication: GASTROINTESTINAL BACTERIAL INFECTION
     Route: 065
     Dates: end: 20120422
  3. MELATONIN [Concomitant]
     Route: 065
  4. FLUVOXAMINE MALEATE [Concomitant]
     Indication: DEPRESSION
     Route: 065
  5. ACETAMINOPHEN [Concomitant]
     Route: 065
  6. NEXIUM [Concomitant]
     Route: 065
  7. REMICADE [Suspect]
     Indication: CROHN'S DISEASE
     Route: 042
     Dates: start: 20080101
  8. VITAMIN B-12 [Concomitant]
     Dosage: 1CC OF MONTHLY
     Route: 065
  9. GABAPENTIN [Concomitant]
     Dosage: 300 MG ONCE A DAY  AND 600MG AT DINNER TIME
     Route: 065

REACTIONS (2)
  - GASTROINTESTINAL BACTERIAL INFECTION [None]
  - GRAND MAL CONVULSION [None]
